FAERS Safety Report 25372318 (Version 1)
Quarter: 2025Q2

REPORT INFORMATION
  Report Type: Spontaneous
  Country: GB (occurrence: US)
  Receive Date: 20250529
  Receipt Date: 20250529
  Transmission Date: 20250716
  Serious: Yes (Death, Hospitalization, Other)
  Sender: MERCK SHARP & DOHME LLC
  Company Number: GB-009507513-2212USA011158

PATIENT
  Age: 13 Month
  Sex: Male

DRUGS (8)
  1. M-M-R II [Suspect]
     Active Substance: MEASLES VIRUS STRAIN ENDERS^ ATTENUATED EDMONSTON LIVE ANTIGEN\MUMPS VIRUS STRAIN B LEVEL JERYL LYNN
     Indication: Prophylaxis
  2. ERYTHROMYCIN [Concomitant]
     Active Substance: ERYTHROMYCIN
     Indication: Conjunctivitis bacterial
     Route: 047
  3. VARICELLA-ZOSTER VIRUS STRAIN OKA/MERCK LIVE ANTIGEN [Concomitant]
     Active Substance: VARICELLA-ZOSTER VIRUS STRAIN OKA/MERCK LIVE ANTIGEN
     Indication: Prophylaxis
  4. HAEMOPHILUS INFLUENZAE B VACCINE [Concomitant]
     Indication: Prophylaxis
  5. PNEUMOCOCCAL 13-VALENT CONJUGATE VACCINE [Concomitant]
     Active Substance: PNEUMOCOCCAL 13-VALENT CONJUGATE VACCINE
     Indication: Prophylaxis
  6. INFLUENZA VIRUS VACCINE [Concomitant]
     Active Substance: INFLUENZA VIRUS VACCINE
     Indication: Prophylaxis
  7. INACTIVATED HEPATITIS A VACCINE [Concomitant]
     Indication: Prophylaxis
  8. STERILE DILUENT (WATER) [Suspect]
     Active Substance: WATER
     Indication: Prophylaxis

REACTIONS (25)
  - Acute respiratory distress syndrome [Fatal]
  - Haemophagocytic lymphohistiocytosis [Unknown]
  - Pneumonitis [Not Recovered/Not Resolved]
  - Conjunctivitis [Unknown]
  - Morbillivirus test positive [Unknown]
  - Rubulavirus test positive [Unknown]
  - Rubivirus test positive [Unknown]
  - Somnolence [Unknown]
  - Otitis media acute [Unknown]
  - Oliguria [Unknown]
  - Cough [Unknown]
  - Epstein-Barr virus infection [Unknown]
  - Respiratory failure [Fatal]
  - Respiratory syncytial virus infection [Unknown]
  - Pharyngeal inflammation [Unknown]
  - Pyrexia [Unknown]
  - Stridor [Unknown]
  - Condition aggravated [Unknown]
  - Haemophagocytic lymphohistiocytosis [Unknown]
  - Respiratory distress [Unknown]
  - Epiglottitis [Unknown]
  - Herpes simplex [Unknown]
  - Cytomegalovirus infection [Unknown]
  - Drug ineffective [Unknown]
  - Tonsillitis [Unknown]
